FAERS Safety Report 7703452-4 (Version None)
Quarter: 2011Q3

REPORT INFORMATION
  Report Type: 
  Country: None (occurrence: None)
  Receive Date: 20110823
  Receipt Date: 20110817
  Transmission Date: 20111222
  Serious: Yes (Hospitalization)
  Sender: FDA-Public Use
  Company Number: US-ABBOTT-11P-163-0846337-00

PATIENT
  Sex: Female
  Weight: 68.1 kg

DRUGS (5)
  1. LIPITOR [Concomitant]
     Indication: HYPERLIPIDAEMIA
  2. LANTUS [Concomitant]
     Indication: DIABETES MELLITUS
  3. LISINOPRIL [Concomitant]
     Indication: HYPERTENSION
  4. HUMALOG [Concomitant]
     Indication: DIABETES MELLITUS
  5. HUMIRA [Suspect]
     Indication: PSORIASIS
     Dates: start: 20080101, end: 20101201

REACTIONS (4)
  - PSORIASIS [None]
  - FOOT DEFORMITY [None]
  - BUNION [None]
  - LOCALISED INFECTION [None]
